FAERS Safety Report 4925723-7 (Version None)
Quarter: 2006Q1

REPORT INFORMATION
  Report Type: 
  Country: None (occurrence: None)
  Receive Date: 20060228
  Receipt Date: 20050124
  Transmission Date: 20060701
  Serious: No
  Sender: FDA-Public Use
  Company Number: US-GLAXOSMITHKLINE-A0543065A

PATIENT
  Age: 18 Year
  Sex: Female
  Weight: 61.4 kg

DRUGS (3)
  1. LAMICTAL [Suspect]
     Route: 048
     Dates: start: 20021201, end: 20050101
  2. EFFEXOR XR [Concomitant]
  3. WELLBUTRIN XL [Concomitant]
     Route: 048

REACTIONS (1)
  - FATIGUE [None]
